FAERS Safety Report 8612237 (Version 8)
Quarter: 2019Q3

REPORT INFORMATION
  Report Type: Report from Study
  Country: DK (occurrence: DK)
  Receive Date: 20120613
  Receipt Date: 20190719
  Transmission Date: 20191005
  Serious: Yes (Hospitalization)
  Sender: FDA-Public Use
  Company Number: DK-UCBSA-057447

PATIENT
  Age: 64 Year
  Sex: Male
  Weight: 92.7 kg

DRUGS (9)
  1. CERTOLIZUMAB PEGOL VS PLACEBO [Suspect]
     Active Substance: CERTOLIZUMAB PEGOL
     Dosage: CZP 400 MG W0,W2,W4 FOLLOWED BY CZP 200 MG Q2W/PLACEBO,CZP 400 MG W2,W4,W6 FOLLOWED BY CZP 200MG Q2W
     Route: 058
     Dates: start: 20110614, end: 2011
  2. METHOTREXATE. [Concomitant]
     Active Substance: METHOTREXATE
     Indication: RHEUMATOID ARTHRITIS
     Dosage: 20 MG QS
     Route: 048
     Dates: start: 20110223
  3. PREDNISOLONE. [Concomitant]
     Active Substance: PREDNISOLONE
     Indication: RHEUMATOID ARTHRITIS
     Dosage: 2.5 MG, ONCE DAILY (QD)
     Route: 048
     Dates: start: 20120123
  4. UNIKALK SILVER [Concomitant]
     Indication: PROPHYLAXIS
     Dosage: 400 MG CALCIUM AND 10 MCG D-VITAMIN
     Route: 048
     Dates: start: 20080327
  5. CERTOLIZUMAB PEGOL VS PLACEBO [Suspect]
     Active Substance: CERTOLIZUMAB PEGOL
     Indication: RHEUMATOID ARTHRITIS
  6. CERTOLIZUMAB PEGOL VS PLACEBO [Suspect]
     Active Substance: CERTOLIZUMAB PEGOL
     Indication: RHEUMATOID ARTHRITIS
     Dosage: 200 MG, EV 2 WEEKS(QOW)
     Route: 058
     Dates: start: 20111004, end: 20120305
  7. PARACETAMOL [Concomitant]
     Active Substance: ACETAMINOPHEN
     Indication: RHEUMATOID ARTHRITIS
     Dosage: 1 G, AS NEEDED (PRN)
     Route: 048
     Dates: start: 2005
  8. ENALAPRIL [Concomitant]
     Active Substance: ENALAPRIL
     Indication: HYPERTENSION
     Dosage: UNK UNK, ONCE DAILY (QD)
     Route: 048
     Dates: start: 201204
  9. FOLIC ACID. [Concomitant]
     Active Substance: FOLIC ACID
     Indication: PROPHYLAXIS
     Dosage: 5 MG QS
     Route: 048
     Dates: start: 20080327

REACTIONS (3)
  - Bladder transitional cell carcinoma stage I [Recovered/Resolved]
  - Bladder cancer [Recovered/Resolved]
  - Prostate cancer [Recovered/Resolved]

NARRATIVE: CASE EVENT DATE: 20120510
